FAERS Safety Report 11226889 (Version 2)
Quarter: 2018Q4

REPORT INFORMATION
  Report Type: Report from Study
  Country: US (occurrence: US)
  Receive Date: 20150630
  Receipt Date: 20181017
  Transmission Date: 20190204
  Serious: No
  Sender: FDA-Public Use
  Company Number: US-SA-2015SA084712

PATIENT
  Age: 41 Year
  Sex: Female

DRUGS (8)
  1. PROVIGIL [MODAFINIL] [Concomitant]
     Dosage: UNK UNK,UNK
  2. TERIFLUNOMIDE. [Suspect]
     Active Substance: TERIFLUNOMIDE
     Indication: SECONDARY PROGRESSIVE MULTIPLE SCLEROSIS
     Dosage: 7 MG,QD
     Route: 048
     Dates: start: 20150605, end: 20150615
  3. TERIFLUNOMIDE. [Suspect]
     Active Substance: TERIFLUNOMIDE
     Dosage: 14 MG,QD
     Route: 048
     Dates: start: 20150616
  4. TERIFLUNOMIDE. [Suspect]
     Active Substance: TERIFLUNOMIDE
     Dosage: 14 MG,QOD
     Route: 048
     Dates: start: 201507, end: 201512
  5. TERIFLUNOMIDE. [Suspect]
     Active Substance: TERIFLUNOMIDE
     Dosage: 14 MG,QD
     Route: 048
     Dates: start: 20180705
  6. LORATADINE. [Concomitant]
     Active Substance: LORATADINE
     Indication: PAIN
     Dosage: 2 TO 3 A DAY
  7. SOLU-MEDROL [Concomitant]
     Active Substance: METHYLPREDNISOLONE SODIUM SUCCINATE
     Dosage: UNK
  8. PROVIGIL [MODAFINIL] [Concomitant]
     Dosage: UNK UNK,QD

REACTIONS (35)
  - Memory impairment [Unknown]
  - Malaise [Not Recovered/Not Resolved]
  - Liver function test abnormal [Unknown]
  - Weight decreased [Unknown]
  - Headache [Not Recovered/Not Resolved]
  - Myalgia [Unknown]
  - Inappropriate schedule of product administration [Unknown]
  - Nausea [Unknown]
  - Ear infection [Not Recovered/Not Resolved]
  - Hypoaesthesia [Not Recovered/Not Resolved]
  - Pain [Unknown]
  - Pain [Unknown]
  - Vision blurred [Not Recovered/Not Resolved]
  - Heart rate increased [Unknown]
  - Menstrual disorder [Unknown]
  - Cyst [Unknown]
  - Product dose omission [Unknown]
  - Insomnia [Not Recovered/Not Resolved]
  - Temperature intolerance [Unknown]
  - Abdominal discomfort [Not Recovered/Not Resolved]
  - Fatigue [Not Recovered/Not Resolved]
  - Alopecia [Recovering/Resolving]
  - Dry skin [Unknown]
  - Rash [Unknown]
  - Micturition urgency [Not Recovered/Not Resolved]
  - Blood pressure increased [Not Recovered/Not Resolved]
  - Hypoaesthesia [Unknown]
  - Somnolence [Unknown]
  - Blood glucose increased [Unknown]
  - Diarrhoea [Not Recovered/Not Resolved]
  - Flatulence [Not Recovered/Not Resolved]
  - Glycosylated haemoglobin increased [Unknown]
  - Abdominal discomfort [Not Recovered/Not Resolved]
  - Skin exfoliation [Unknown]
  - Tooth disorder [Unknown]

NARRATIVE: CASE EVENT DATE: 2015
